FAERS Safety Report 15132624 (Version 2)
Quarter: 2018Q3

REPORT INFORMATION
  Report Type: Spontaneous
  Country: IT (occurrence: IT)
  Receive Date: 20180712
  Receipt Date: 20180723
  Transmission Date: 20181010
  Serious: Yes (Hospitalization)
  Sender: FDA-Public Use
  Company Number: IT-TEVA-2018-IT-923772

PATIENT
  Age: 16 Year
  Sex: Female

DRUGS (3)
  1. ENTUMIN [Suspect]
     Active Substance: CLOTHIAPINE
     Route: 048
     Dates: start: 20180209, end: 20180209
  2. CLOZAPINE. [Suspect]
     Active Substance: CLOZAPINE
     Route: 048
     Dates: start: 20180209, end: 20180209
  3. EN [Suspect]
     Active Substance: DELORAZEPAM
     Route: 048
     Dates: start: 20180209, end: 20180209

REACTIONS (2)
  - Intentional overdose [Recovering/Resolving]
  - Sopor [Recovering/Resolving]

NARRATIVE: CASE EVENT DATE: 20180209
